FAERS Safety Report 5543047-4 (Version None)
Quarter: 2007Q4

REPORT INFORMATION
  Report Type: 
  Country: None (occurrence: None)
  Receive Date: 20071123
  Receipt Date: 20070215
  Transmission Date: 20080405
  Serious: Yes (Hospitalization, Other)
  Sender: FDA-Public Use
  Company Number: US-JNJFOC-20070106210

PATIENT
  Sex: Female

DRUGS (2)
  1. LEVAQUIN [Suspect]
     Indication: WOUND DEHISCENCE
  2. LEVAQUIN [Suspect]
     Indication: WOUND INFECTION

REACTIONS (1)
  - TENDON RUPTURE [None]
